FAERS Safety Report 6123138-X (Version None)
Quarter: 2009Q1

REPORT INFORMATION
  Report Type: 
  Country: None (occurrence: None)
  Receive Date: 20090318
  Receipt Date: 20090310
  Transmission Date: 20090719
  Serious: Yes (Hospitalization)
  Sender: FDA-Public Use
  Company Number: US-ELI_LILLY_AND_COMPANY-US200903002751

PATIENT
  Age: 65 Year
  Sex: Male

DRUGS (3)
  1. HUMALOG [Suspect]
     Dosage: 6 U, UNK
     Dates: start: 19940101
  2. HUMALOG MIX 75/25 [Suspect]
     Dosage: 10 U, DAILY (1/D)
     Dates: start: 19940101
  3. HUMULIN N [Suspect]
     Dosage: 8 U, EACH EVENING
     Dates: start: 19940101

REACTIONS (4)
  - BLOOD GLUCOSE INCREASED [None]
  - MEMORY IMPAIRMENT [None]
  - RETINAL DISORDER [None]
  - VISUAL ACUITY REDUCED [None]
